FAERS Safety Report 4356750-9 (Version None)
Quarter: 2004Q2

REPORT INFORMATION
  Report Type: 
  Country: None (occurrence: None)
  Receive Date: 20040507
  Receipt Date: 20040422
  Transmission Date: 20050107
  Serious: Yes (Other)
  Sender: FDA-Public Use
  Company Number: USA021225018

PATIENT
  Age: 85 Year
  Sex: Female
  Weight: 45 kg

DRUGS (11)
  1. FORTEO [Suspect]
     Indication: OSTEOPOROSIS
     Dosage: 20 UG/DAY
     Dates: start: 20021218
  2. FORTEO [Suspect]
  3. ATENOLOL [Concomitant]
  4. LEVOXYL [Concomitant]
  5. ASPIRIN [Concomitant]
  6. MULTI-VITAMIN [Concomitant]
  7. CALCIUM CARBONATE + VITAMIN D [Concomitant]
  8. ACIPHEX (RABEPRAZOLE SODIUIM) [Concomitant]
  9. VITAMIN E [Concomitant]
  10. PROTONIX [Concomitant]
  11. ZOLOFT [Concomitant]

REACTIONS (12)
  - ACCIDENTAL NEEDLE STICK [None]
  - DISCOMFORT [None]
  - DIZZINESS [None]
  - FALL [None]
  - INJECTION SITE HAEMORRHAGE [None]
  - INJECTION SITE PAIN [None]
  - INJECTION SITE REACTION [None]
  - NASAL DRYNESS [None]
  - NAUSEA [None]
  - PAIN IN EXTREMITY [None]
  - PELVIC FRACTURE [None]
  - PHARMACEUTICAL PRODUCT COMPLAINT [None]
